FAERS Safety Report 21332817 (Version 1)
Quarter: 2022Q3

REPORT INFORMATION
  Report Type: Spontaneous
  Country: US (occurrence: None)
  Receive Date: 20220913
  Receipt Date: 20220913
  Transmission Date: 20221027
  Serious: Yes (Disabling)
  Sender: FDA-Public Use
  Company Number: None

PATIENT
  Age: 68 Year
  Sex: Female
  Weight: 58.5 kg

DRUGS (4)
  1. MAGNESIUM CITRATE [Suspect]
     Active Substance: MAGNESIUM CITRATE
     Indication: Colonoscopy
     Dosage: OTHER QUANTITY : 1 BOTTLE;?OTHER FREQUENCY : ONCE;?
     Route: 048
     Dates: start: 20220711, end: 20220711
  2. VITAMIN B12 [Concomitant]
     Active Substance: CYANOCOBALAMIN
  3. FOLIC ACID [Concomitant]
  4. HERBALS\TURMERIC [Concomitant]
     Active Substance: HERBALS\TURMERIC

REACTIONS (9)
  - Abdominal pain [None]
  - Nausea [None]
  - Diarrhoea [None]
  - Recalled product administered [None]
  - Constipation [None]
  - Illness [None]
  - Abdominal distension [None]
  - Chills [None]
  - Malaise [None]

NARRATIVE: CASE EVENT DATE: 20220722
